FAERS Safety Report 6981024-7 (Version None)
Quarter: 2010Q3

REPORT INFORMATION
  Report Type: 
  Country: None (occurrence: None)
  Receive Date: 20100827
  Receipt Date: 20090629
  Transmission Date: 20110219
  Serious: Yes (Hospitalization)
  Sender: FDA-Public Use
  Company Number: 2009-05015

PATIENT
  Age: 86 Year
  Sex: Male

DRUGS (6)
  1. ALTOPREV [Suspect]
     Indication: BLOOD CHOLESTEROL INCREASED
     Dosage: 1 TABLET, DAILY, ORAL
     Route: 048
     Dates: start: 20050101, end: 20050101
  2. DIGOXIN [Concomitant]
  3. LOPID [Concomitant]
  4. TOPROL-XL [Concomitant]
  5. ZETIA [Concomitant]
  6. ASPIRIN [Concomitant]

REACTIONS (1)
  - MUSCULAR WEAKNESS [None]
